FAERS Safety Report 8387051-X (Version None)
Quarter: 2012Q2

REPORT INFORMATION
  Report Type: 
  Country: None (occurrence: None)
  Receive Date: 20120525
  Receipt Date: 20120521
  Transmission Date: 20120825
  Serious: Yes (Other)
  Sender: FDA-Public Use
  Company Number: BR-ABBOTT-12P-020-0937721-00

PATIENT
  Sex: Female
  Weight: 64 kg

DRUGS (6)
  1. HUMIRA [Suspect]
     Indication: ANKYLOSING SPONDYLITIS
     Route: 058
     Dates: start: 20090301
  2. UNSPECIFIED MEDICATION [Concomitant]
     Indication: ANKYLOSING SPONDYLITIS
     Dosage: ON SATURDAYS
  3. CLONAZEPAM [Concomitant]
     Indication: ANTIDEPRESSANT THERAPY
     Dosage: AT NIGHT
  4. SERTRALINE HYDROCHLORIDE [Concomitant]
     Indication: ANTIDEPRESSANT THERAPY
     Dosage: AT NIGHT
  5. METHOTREXATE [Concomitant]
     Indication: ANKYLOSING SPONDYLITIS
  6. ESTRADIOL [Concomitant]
     Indication: HORMONE THERAPY
     Dosage: AT NIGHT

REACTIONS (3)
  - DEPRESSION [None]
  - UPPER EXTREMITY MASS [None]
  - INFLAMMATION [None]
